FAERS Safety Report 16417451 (Version 1)
Quarter: 2019Q2

REPORT INFORMATION
  Report Type: Report from Study
  Country: GR (occurrence: GR)
  Receive Date: 20190611
  Receipt Date: 20190611
  Transmission Date: 20190711
  Serious: Yes (Hospitalization, Other)
  Sender: FDA-Public Use
  Company Number: GR-MYLANLABS-2019M1054523

PATIENT
  Age: 72 Year
  Sex: Male

DRUGS (8)
  1. CARVEPEN [Concomitant]
     Active Substance: CARVEDILOL
     Dosage: UNK
  2. LUMAREN [Concomitant]
     Dosage: UNK
  3. DIAMICRON [Concomitant]
     Active Substance: GLICLAZIDE
     Indication: DIABETES MELLITUS
     Dosage: UNK
  4. SALOSPIR [Concomitant]
     Active Substance: ASPIRIN
     Dosage: UNK
  5. SOLURIC [Concomitant]
     Active Substance: ALLOPURINOL
     Indication: BLOOD URIC ACID
     Dosage: UNK
  6. CLOPIDOGREL [Suspect]
     Active Substance: CLOPIDOGREL BISULFATE
     Indication: PRODUCT USED FOR UNKNOWN INDICATION
     Dosage: UNK
     Route: 065
  7. TRIATEC                            /00885601/ [Suspect]
     Active Substance: RAMIPRIL
     Indication: BLOOD PRESSURE ABNORMAL
     Dosage: 0.5 DF, 1X/DAY
     Route: 065
  8. JANUVIA [Concomitant]
     Active Substance: SITAGLIPTIN PHOSPHATE
     Dosage: UNK

REACTIONS (3)
  - Pancreatitis [Unknown]
  - Blood glucose increased [Recovered/Resolved]
  - Hypoglycaemia [Unknown]
